FAERS Safety Report 19573639 (Version 1)
Quarter: 2021Q3

REPORT INFORMATION
  Report Type: Report from Study
  Country: US (occurrence: US)
  Receive Date: 20210717
  Receipt Date: 20210717
  Transmission Date: 20211014
  Serious: Yes (Hospitalization, Other)
  Sender: FDA-Public Use
  Company Number: US-SHIRE-US201919338

PATIENT
  Age: 65 Year
  Sex: Female

DRUGS (2)
  1. HUMAN IMMUNOGLOBULIN; HYALURONIDASE [Suspect]
     Active Substance: HUMAN IMMUNOGLOBULIN G\HYALURONIDASE RECOMBINANT HUMAN
     Indication: IMMUNODEFICIENCY COMMON VARIABLE
     Dosage: 40 GRAM, 1X A MONTH
     Route: 065
  2. CUVITRU [Suspect]
     Active Substance: HUMAN IMMUNOGLOBULIN G
     Indication: IMMUNODEFICIENCY COMMON VARIABLE
     Route: 065

REACTIONS (7)
  - Primary hyperaldosteronism [Unknown]
  - Post procedural infection [Unknown]
  - Urinary tract infection [Unknown]
  - Anxiety disorder [Unknown]
  - Sepsis [Recovered/Resolved]
  - Crohn^s disease [Unknown]
  - Asthma [Unknown]

NARRATIVE: CASE EVENT DATE: 201801
